FAERS Safety Report 13363638 (Version 1)
Quarter: 2017Q1

REPORT INFORMATION
  Report Type: Spontaneous
  Country: DK (occurrence: DK)
  Receive Date: 20170323
  Receipt Date: 20170323
  Transmission Date: 20170429
  Serious: Yes (Disabling)
  Sender: FDA-Public Use
  Company Number: DK-EMD SERONO-8145586

PATIENT

DRUGS (1)
  1. PERGOTIME [Suspect]
     Active Substance: CLOMIPHENE CITRATE
     Indication: PRODUCT USED FOR UNKNOWN INDICATION
     Dates: end: 2016

REACTIONS (1)
  - Visual impairment [Not Recovered/Not Resolved]
